FAERS Safety Report 5125026-4 (Version None)
Quarter: 2006Q4

REPORT INFORMATION
  Report Type: 
  Country: None (occurrence: None)
  Receive Date: 20061011
  Receipt Date: 20061002
  Transmission Date: 20070319
  Serious: Yes (Other)
  Sender: FDA-Public Use
  Company Number: CH-JNJFOC-20060703593

PATIENT
  Sex: Female

DRUGS (3)
  1. ORTHO EVRA [Suspect]
     Indication: CONTRACEPTION
     Route: 062
  2. XEFO [Concomitant]
     Indication: BACK PAIN
     Dosage: 2 TO 3 TABLETS, UNCLEAR IF 4 OR 8 MG
     Route: 048
  3. TRAMADOL HCL [Concomitant]
     Indication: BACK PAIN
     Dosage: AS NECESSARY
     Route: 065

REACTIONS (2)
  - HAEMARTHROSIS [None]
  - HAEMATOMA [None]
